FAERS Safety Report 12196417 (Version 2)
Quarter: 2016Q3

REPORT INFORMATION
  Report Type: Spontaneous
  Country: US (occurrence: US)
  Receive Date: 20160321
  Receipt Date: 20160914
  Transmission Date: 20161109
  Serious: Yes (Hospitalization, Other)
  Sender: FDA-Public Use
  Company Number: US-GLAXOSMITHKLINE-US2016GSK038882

PATIENT
  Age: 68 Year
  Sex: Female

DRUGS (2)
  1. ADVAIR HFA [Suspect]
     Active Substance: FLUTICASONE PROPIONATE\SALMETEROL XINAFOATE
     Indication: ASTHMA
     Dosage: UNK UNK,
     Dates: start: 201409
  2. ADVAIR HFA [Suspect]
     Active Substance: FLUTICASONE PROPIONATE\SALMETEROL XINAFOATE
     Indication: CHRONIC OBSTRUCTIVE PULMONARY DISEASE
     Dosage: 500/50 UG, 1 PUFF(S), BID

REACTIONS (5)
  - Haematoma [Recovered/Resolved]
  - Hospitalisation [Unknown]
  - Intestinal obstruction [Recovered/Resolved]
  - Atrial fibrillation [Recovered/Resolved]
  - Large intestine operation [Unknown]

NARRATIVE: CASE EVENT DATE: 20160106
